FAERS Safety Report 9034625 (Version 2)
Quarter: 2013Q1

REPORT INFORMATION
  Report Type: Spontaneous
  Country: US (occurrence: US)
  Receive Date: 20130128
  Receipt Date: 20130215
  Transmission Date: 20140127
  Serious: Yes (Death)
  Sender: FDA-Public Use
  Company Number: US-GLAXOSMITHKLINE-A1007160A

PATIENT
  Age: 61 Year
  Sex: Male
  Weight: 58 kg

DRUGS (14)
  1. VOTRIENT [Suspect]
     Indication: RENAL CANCER
     Dosage: 800MG PER DAY
     Route: 048
  2. MELATONIN [Concomitant]
     Route: 048
  3. VITAMIN C [Concomitant]
     Route: 048
  4. MULTIVITAMIN [Concomitant]
     Route: 048
  5. ASPIRIN [Concomitant]
     Route: 048
  6. ALLOPURINOL [Concomitant]
     Route: 048
  7. CYMBALTA [Concomitant]
     Route: 048
  8. AMBIEN [Concomitant]
     Route: 048
  9. ATIVAN [Concomitant]
     Route: 048
  10. LOSARTAN POTASSIUM [Concomitant]
     Route: 048
  11. OXYCODONE/APAP [Concomitant]
     Route: 048
  12. DILAUDID [Concomitant]
     Route: 048
  13. PRILOSEC [Concomitant]
     Route: 048
  14. METFORMIN [Concomitant]
     Route: 048

REACTIONS (6)
  - Death [Fatal]
  - Dehydration [Unknown]
  - Fatigue [Unknown]
  - Decreased appetite [Unknown]
  - Arthralgia [Unknown]
  - Pelvic pain [Unknown]
